FAERS Safety Report 7966826-2 (Version None)
Quarter: 2011Q4

REPORT INFORMATION
  Report Type: 
  Country: None (occurrence: None)
  Receive Date: 20111209
  Receipt Date: 20111130
  Transmission Date: 20120403
  Serious: No
  Sender: FDA-Public Use
  Company Number: US-BIOGENIDEC-2011BI045389

PATIENT
  Sex: Female

DRUGS (2)
  1. AVONEX [Suspect]
     Route: 030
     Dates: end: 20030101
  2. AVONEX [Suspect]
     Indication: MULTIPLE SCLEROSIS
     Route: 030
     Dates: start: 20030101

REACTIONS (6)
  - MUSCLE SPASMS [None]
  - GAIT DISTURBANCE [None]
  - TOOTH EROSION [None]
  - DEPRESSION [None]
  - TOOTHACHE [None]
  - PAIN IN EXTREMITY [None]
